FAERS Safety Report 26179297 (Version 1)
Quarter: 2025Q4

REPORT INFORMATION
  Report Type: Spontaneous
  Country: US (occurrence: None)
  Receive Date: 20251219
  Receipt Date: 20251219
  Transmission Date: 20260117
  Serious: Yes (Hospitalization)
  Sender: FDA-CTU
  Company Number: None

PATIENT
  Age: 44 Year
  Sex: Male
  Weight: 83.7 kg

DRUGS (2)
  1. CYTARABINE [Suspect]
     Active Substance: CYTARABINE
     Dates: end: 20251213
  2. DAUNORUBICIN [Suspect]
     Active Substance: DAUNORUBICIN
     Dates: end: 20251213

REACTIONS (6)
  - Pulmonary mass [None]
  - Tachypnoea [None]
  - Hypoxia [None]
  - Pneumonia [None]
  - Fungal infection [None]
  - Gait disturbance [None]

NARRATIVE: CASE EVENT DATE: 20251213
